FAERS Safety Report 8646043 (Version 5)
Quarter: 2012Q4

REPORT INFORMATION
  Report Type: 
  Country: US (occurrence: US)
  Receive Date: 20120702
  Receipt Date: 20120913
  Transmission Date: 20130627
  Serious: Yes (Hospitalization, Disabling, Other)
  Sender: FDA-Public Use
  Company Number: US-009507513-1205USA01680

PATIENT

DRUGS (3)
  1. FOSAMAX [Suspect]
     Indication: OSTEOPOROSIS
     Dosage: 70 mg, UNK
     Route: 048
     Dates: start: 20040113, end: 200806
  2. ALENDRONATE SODIUM [Suspect]
     Indication: OSTEOPOROSIS
     Dosage: 70 mg, UNK
     Route: 048
     Dates: start: 20080628, end: 20100420
  3. SYNTHROID [Concomitant]
     Indication: HYPOTHYROIDISM

REACTIONS (36)
  - Electrolyte imbalance [Unknown]
  - Hypertension [Not Recovered/Not Resolved]
  - Osteonecrosis of jaw [Not Recovered/Not Resolved]
  - Anxiety [Not Recovered/Not Resolved]
  - Blood cholesterol increased [Unknown]
  - Wrist fracture [Unknown]
  - Macular degeneration [Not Recovered/Not Resolved]
  - Tooth extraction [Unknown]
  - Tooth fracture [Unknown]
  - Dental care [Unknown]
  - Osteitis [Not Recovered/Not Resolved]
  - Necrosis [Unknown]
  - Tooth extraction [Unknown]
  - Increased tendency to bruise [Unknown]
  - Dental implantation [Unknown]
  - Endotracheal intubation complication [Unknown]
  - Tooth disorder [Unknown]
  - Tooth fracture [Unknown]
  - Tooth extraction [Unknown]
  - Osteomyelitis [Unknown]
  - Oral infection [Unknown]
  - Gingival infection [Unknown]
  - Insomnia [Unknown]
  - Hyponatraemia [Not Recovered/Not Resolved]
  - Hypotension [Unknown]
  - Synovial cyst [Not Recovered/Not Resolved]
  - Asthma [Unknown]
  - Dizziness [Not Recovered/Not Resolved]
  - Joint swelling [Unknown]
  - Hypothyroidism [Unknown]
  - Syncope [Unknown]
  - Basal cell carcinoma [Unknown]
  - Constipation [Unknown]
  - Fatigue [Unknown]
  - Bursitis [Unknown]
  - Cerebral arteriosclerosis [Unknown]
